FAERS Safety Report 4357713-X (Version None)
Quarter: 2004Q2

REPORT INFORMATION
  Report Type: 
  Country: None (occurrence: None)
  Receive Date: 20040513
  Receipt Date: 20031112
  Transmission Date: 20050107
  Serious: Yes (Other)
  Sender: FDA-Public Use
  Company Number: FR-GLAXOSMITHKLINE-B0314668A

PATIENT
  Age: 33 Year
  Sex: Female

DRUGS (3)
  1. MALARONE [Suspect]
     Indication: MALARIA PROPHYLAXIS
     Dosage: 250MG PER DAY
     Route: 048
     Dates: start: 20031004, end: 20031101
  2. SCOPOLAMINE PATCH [Suspect]
     Indication: MOTION SICKNESS
     Route: 062
     Dates: start: 20031005, end: 20031025
  3. HARMONET [Concomitant]
     Indication: CONTRACEPTION
     Route: 048

REACTIONS (7)
  - ABDOMINAL PAIN [None]
  - DIZZINESS [None]
  - EYE PAIN [None]
  - HEADACHE [None]
  - LACRIMATION INCREASED [None]
  - MYDRIASIS [None]
  - NAUSEA [None]
